FAERS Safety Report 18069965 (Version 1)
Quarter: 2020Q3

REPORT INFORMATION
  Report Type: Spontaneous
  Country: JP (occurrence: JP)
  Receive Date: 20200727
  Receipt Date: 20200727
  Transmission Date: 20201103
  Serious: Yes (Hospitalization, Other)
  Sender: FDA-Public Use
  Company Number: JP-LUPIN PHARMACEUTICALS INC.-2020-03710

PATIENT
  Age: 74 Year
  Sex: Male

DRUGS (4)
  1. ITRACONAZOLE. [Concomitant]
     Active Substance: ITRACONAZOLE
     Indication: SKIN CANDIDA
     Dosage: 200 MILLIGRAM, QD (4 MG/KG/DAY)
     Route: 065
  2. ITRACONAZOLE. [Concomitant]
     Active Substance: ITRACONAZOLE
     Indication: SINUSITIS FUNGAL
  3. PREDNISOLONE. [Suspect]
     Active Substance: PREDNISOLONE
     Indication: PLASMA CELL MYELOMA
     Dosage: UNK, QD (25?100 MG/DAY)
     Route: 048
  4. METHYLPREDNISOLONE. [Suspect]
     Active Substance: METHYLPREDNISOLONE
     Indication: PLASMA CELL MYELOMA
     Dosage: UNK, (PULSE THERAPY)
     Route: 065

REACTIONS (4)
  - Sinusitis fungal [Not Recovered/Not Resolved]
  - Steroid diabetes [Unknown]
  - Skin candida [Recovered/Resolved]
  - Abscess fungal [Recovered/Resolved]
